FAERS Safety Report 12518444 (Version 1)
Quarter: 2016Q2

REPORT INFORMATION
  Report Type: Spontaneous
  Country: US (occurrence: US)
  Receive Date: 20160630
  Receipt Date: 20160630
  Transmission Date: 20160815
  Serious: No
  Sender: FDA-Public Use
  Company Number: GXBR2016US002053

PATIENT
  Age: 68 Year
  Sex: Female
  Weight: 56.69 kg

DRUGS (2)
  1. BUPROPION HCI TABLETS EXTENDED-RELEASE [Suspect]
     Active Substance: BUPROPION HYDROCHLORIDE
     Indication: SERUM SEROTONIN DECREASED
  2. BUPROPION HCI TABLETS EXTENDED-RELEASE [Suspect]
     Active Substance: BUPROPION HYDROCHLORIDE
     Indication: DOPAMINERGIC DRUG THERAPY
     Dosage: 300 MG, QD
     Route: 048
     Dates: start: 200608, end: 200611

REACTIONS (7)
  - Mental disorder [Recovered/Resolved]
  - Feeling jittery [Recovered/Resolved]
  - Depression [Recovered/Resolved]
  - Agitation [Recovered/Resolved]
  - Thinking abnormal [Recovered/Resolved]
  - Inappropriate affect [Recovered/Resolved]
  - Product formulation issue [Recovered/Resolved]

NARRATIVE: CASE EVENT DATE: 2006
